FAERS Safety Report 11584976 (Version 2)
Quarter: 2015Q4

REPORT INFORMATION
  Report Type: Spontaneous
  Country: FR (occurrence: FR)
  Receive Date: 20151001
  Receipt Date: 20151022
  Transmission Date: 20160304
  Serious: Yes (Life-Threatening, Hospitalization, Other)
  Sender: FDA-Public Use
  Company Number: FR-PFIZER INC-2015321830

PATIENT
  Age: 56 Year
  Sex: Female
  Weight: 73 kg

DRUGS (10)
  1. LERCANIDIPINE [Concomitant]
     Active Substance: LERCANIDIPINE
  2. UVEDOSE [Concomitant]
     Active Substance: CHOLECALCIFEROL
  3. BISOPROLOL [Concomitant]
     Active Substance: BISOPROLOL
  4. DIFFU-K [Concomitant]
     Active Substance: POTASSIUM CHLORIDE
  5. SOMAVERT [Suspect]
     Active Substance: PEGVISOMANT
     Indication: ACROMEGALY
     Dosage: 10 UNK, DAILY
     Dates: start: 2015
  6. SOMATULINE /01330102/ [Concomitant]
     Dosage: 120 UNK
  7. METFORMIN [Concomitant]
     Active Substance: METFORMIN HYDROCHLORIDE
  8. SPIRONOLACTONE. [Concomitant]
     Active Substance: SPIRONOLACTONE
  9. RILMENIDINE [Concomitant]
     Active Substance: RILMENIDINE
  10. COTAREG [Concomitant]
     Active Substance: HYDROCHLOROTHIAZIDE\VALSARTAN

REACTIONS (2)
  - Acute pulmonary oedema [Recovered/Resolved]
  - Cardiac failure [Recovered/Resolved]

NARRATIVE: CASE EVENT DATE: 201509
